FAERS Safety Report 20378869 (Version 11)
Quarter: 2022Q4

REPORT INFORMATION
  Report Type: Spontaneous
  Country: US (occurrence: US)
  Receive Date: 20220126
  Receipt Date: 20221201
  Transmission Date: 20230112
  Serious: Yes (Other)
  Sender: FDA-Public Use
  Company Number: US-PFIZER INC-202200009222

PATIENT
  Age: 79 Year
  Sex: Female

DRUGS (5)
  1. IBRANCE [Suspect]
     Active Substance: PALBOCICLIB
     Dosage: UNK
     Dates: start: 20210101
  2. IBRANCE [Suspect]
     Active Substance: PALBOCICLIB
     Dosage: 125 MG
     Dates: start: 20211203
  3. IBRANCE [Suspect]
     Active Substance: PALBOCICLIB
     Dosage: 125 MG
     Dates: start: 20211215
  4. IBRANCE [Suspect]
     Active Substance: PALBOCICLIB
     Dosage: 125 MG
     Dates: start: 20220110
  5. IBRANCE [Suspect]
     Active Substance: PALBOCICLIB
     Dosage: 125 MG
     Dates: start: 20220201

REACTIONS (21)
  - Neuropathy peripheral [Unknown]
  - Neuralgia [Unknown]
  - Headache [Recovering/Resolving]
  - Peripheral swelling [Unknown]
  - Condition aggravated [Unknown]
  - Pain [Unknown]
  - Hot flush [Recovered/Resolved]
  - Diarrhoea [Unknown]
  - Nausea [Recovering/Resolving]
  - Vomiting [Unknown]
  - Myalgia [Unknown]
  - Alopecia [Unknown]
  - Decreased appetite [Unknown]
  - Vision blurred [Unknown]
  - Pain in extremity [Unknown]
  - Blister [Unknown]
  - Onychomadesis [Unknown]
  - Skin exfoliation [Unknown]
  - Restless legs syndrome [Unknown]
  - Diplopia [Not Recovered/Not Resolved]
  - Fatigue [Unknown]

NARRATIVE: CASE EVENT DATE: 20220101
